FAERS Safety Report 7811497-9 (Version None)
Quarter: 2011Q4

REPORT INFORMATION
  Report Type: 
  Country: None (occurrence: None)
  Receive Date: 20111013
  Receipt Date: 20111013
  Transmission Date: 20120403
  Serious: Yes (Hospitalization)
  Sender: FDA-Public Use
  Company Number: None

PATIENT
  Age: 49 Year
  Sex: Female
  Weight: 83.914 kg

DRUGS (1)
  1. LEVAQUIN [Suspect]
     Indication: PNEUMONIA
     Dosage: 1
     Route: 048
     Dates: start: 20101015, end: 20101016

REACTIONS (4)
  - PRURITUS GENERALISED [None]
  - CHROMATURIA [None]
  - YELLOW SKIN [None]
  - OCULAR ICTERUS [None]
